FAERS Safety Report 14989047 (Version 1)
Quarter: 2018Q2

REPORT INFORMATION
  Report Type: Spontaneous
  Country: DE (occurrence: DE)
  Receive Date: 20180608
  Receipt Date: 20180608
  Transmission Date: 20180711
  Serious: Yes (Hospitalization)
  Sender: FDA-Public Use
  Company Number: DE-BAUSCH-BL-2018-016164

PATIENT
  Age: 64 Year
  Sex: Female

DRUGS (5)
  1. TROMETAMOL [Concomitant]
     Active Substance: TROMETHAMINE
     Indication: PROPHYLAXIS
     Route: 065
  2. VASOPRESSIN. [Concomitant]
     Active Substance: VASOPRESSIN
     Indication: HYPOVOLAEMIA
     Dosage: 0.81 UG/KG, BODY MASS/MIN
     Route: 065
  3. METFORMIN [Suspect]
     Active Substance: METFORMIN HYDROCHLORIDE
     Indication: TYPE 2 DIABETES MELLITUS
     Dosage: 1000 MG, BID (ONCE IN MORNING AND IN EVENING)
     Route: 065
     Dates: start: 201202
  4. METOPROLOL. [Concomitant]
     Active Substance: METOPROLOL
     Indication: PRODUCT USED FOR UNKNOWN INDICATION
     Dosage: 47.5 MG, QD (ONCE IN MORNING )
     Route: 065
  5. SIMVASTATIN. [Concomitant]
     Active Substance: SIMVASTATIN
     Indication: PRODUCT USED FOR UNKNOWN INDICATION
     Dosage: 10 MG, QD (ONCE IN EVENING)
     Route: 065

REACTIONS (9)
  - Ascites [Recovering/Resolving]
  - Ventricular tachycardia [Recovering/Resolving]
  - Bradycardia [Recovering/Resolving]
  - Hypotension [Recovering/Resolving]
  - Hyponatraemia [Recovering/Resolving]
  - Hyperkalaemia [Recovering/Resolving]
  - Hypothermia [Unknown]
  - Pulmonary oedema [Recovering/Resolving]
  - Lactic acidosis [Recovering/Resolving]
